FAERS Safety Report 14834693 (Version 2)
Quarter: 2018Q2

REPORT INFORMATION
  Report Type: Report from Study
  Country: KR (occurrence: KR)
  Receive Date: 20180501
  Receipt Date: 20180515
  Transmission Date: 20180711
  Serious: Yes (Death, Hospitalization)
  Sender: FDA-Public Use
  Company Number: KR-EISAI MEDICAL RESEARCH-EC-2015-005324

PATIENT
  Age: 47 Year
  Sex: Female
  Weight: 39.7 kg

DRUGS (5)
  1. IRCODON [Concomitant]
     Active Substance: OXYCODONE HYDROCHLORIDE
  2. HALAVEN [Suspect]
     Active Substance: ERIBULIN MESYLATE
     Indication: BREAST CANCER
     Route: 041
     Dates: start: 20141118, end: 20150111
  3. ENTELON [Concomitant]
  4. DEXAMETHASONE. [Concomitant]
     Active Substance: DEXAMETHASONE
  5. KEPPRA [Concomitant]
     Active Substance: LEVETIRACETAM

REACTIONS (2)
  - Malignant neoplasm progression [Fatal]
  - Ludwig angina [Recovered/Resolved]

NARRATIVE: CASE EVENT DATE: 20150204
